FAERS Safety Report 6629191-9 (Version None)
Quarter: 2010Q1

REPORT INFORMATION
  Report Type: 
  Country: None (occurrence: None)
  Receive Date: 20100311
  Receipt Date: 20090727
  Transmission Date: 20100710
  Serious: No
  Sender: FDA-Public Use
  Company Number: US-BIOGENIDEC-2009BI023361

PATIENT
  Age: 41 Year
  Sex: Female

DRUGS (1)
  1. AVONEX [Suspect]
     Indication: MULTIPLE SCLEROSIS
     Route: 030
     Dates: start: 20080812

REACTIONS (4)
  - BLOOD GLUCOSE DECREASED [None]
  - DIZZINESS [None]
  - GAIT DISTURBANCE [None]
  - HYPERHIDROSIS [None]
